FAERS Safety Report 6284545-8 (Version None)
Quarter: 2009Q3

REPORT INFORMATION
  Report Type: 
  Country: None (occurrence: None)
  Receive Date: 20090723
  Receipt Date: 20090713
  Transmission Date: 20100115
  Serious: No
  Sender: FDA-Public Use
  Company Number: 2009008458

PATIENT
  Sex: Female

DRUGS (1)
  1. FENTORA [Suspect]
     Indication: CANCER PAIN
     Dosage: 200 MCG, BU
     Route: 002

REACTIONS (2)
  - DRUG ADMINISTRATION ERROR [None]
  - INCORRECT ROUTE OF DRUG ADMINISTRATION [None]
